FAERS Safety Report 11203899 (Version 1)
Quarter: 2015Q2

REPORT INFORMATION
  Report Type: Spontaneous
  Country: US (occurrence: US)
  Receive Date: 20150619
  Receipt Date: 20150619
  Transmission Date: 20150821
  Serious: No
  Sender: FDA-Public Use
  Company Number: US-GLAXOSMITHKLINE-US2015GSK056163

PATIENT
  Sex: Female
  Weight: 68 kg

DRUGS (7)
  1. IMITREX [Suspect]
     Active Substance: SUMATRIPTAN\SUMATRIPTAN SUCCINATE
     Indication: PRODUCT USED FOR UNKNOWN INDICATION
     Dosage: UNK, PRN
  2. DEPAKOTE [Suspect]
     Active Substance: DIVALPROEX SODIUM
     Indication: MIGRAINE
     Dosage: UNK, U
  3. TREXIMET [Concomitant]
     Active Substance: NAPROXEN SODIUM\SUMATRIPTAN SUCCINATE
  4. LYRICA [Suspect]
     Active Substance: PREGABALIN
     Indication: FIBROMYALGIA
     Dosage: 75 MG, BID
     Route: 048
  5. XANAX [Concomitant]
     Active Substance: ALPRAZOLAM
  6. SUMATRIPTAN TABLET [Concomitant]
     Active Substance: SUMATRIPTAN
  7. PROTONIX [Concomitant]
     Active Substance: PANTOPRAZOLE SODIUM

REACTIONS (9)
  - Fibromyalgia [Unknown]
  - Fall [Unknown]
  - Fatigue [Unknown]
  - Somnolence [Unknown]
  - Blood cholesterol increased [Unknown]
  - Pain [Unknown]
  - Migraine [Unknown]
  - Foot fracture [Unknown]
  - Joint injury [Unknown]

NARRATIVE: CASE EVENT DATE: 2014
